FAERS Safety Report 9818832 (Version 2)
Quarter: 2014Q1

REPORT INFORMATION
  Report Type: Spontaneous
  Country: US (occurrence: US)
  Receive Date: 20140115
  Receipt Date: 20140213
  Transmission Date: 20141002
  Serious: No
  Sender: FDA-Public Use
  Company Number: US-PFIZER INC-2014006671

PATIENT
  Age: 61 Year
  Sex: Female

DRUGS (11)
  1. NEURONTIN [Suspect]
     Indication: NEUROPATHY PERIPHERAL
     Dosage: 2 DF, 3X/DAY
     Route: 048
     Dates: start: 20120509, end: 201208
  2. PEPPERMINT INDIGESTION TABLETS [Concomitant]
     Dosage: UNK
  3. FISH OIL [Concomitant]
     Dosage: UNK
  4. ZOFRAN [Concomitant]
     Dosage: UNK
  5. LOMOTIL [Concomitant]
     Dosage: UNK
  6. LISINOPRIL [Concomitant]
     Dosage: UNK
  7. BENTYL [Concomitant]
     Dosage: UNK
  8. TYLENOL [Concomitant]
     Dosage: UNK
  9. METFORMIN [Concomitant]
     Dosage: UNK
  10. M.V.I. [Concomitant]
     Dosage: UNK
  11. BENEFIBER [Concomitant]

REACTIONS (7)
  - Hypersensitivity [Unknown]
  - Drug intolerance [Unknown]
  - Back pain [Unknown]
  - Renal pain [Unknown]
  - Panic attack [Unknown]
  - Mood altered [Unknown]
  - Affect lability [Recovered/Resolved]
